FAERS Safety Report 4656637-8 (Version None)
Quarter: 2005Q2

REPORT INFORMATION
  Report Type: 
  Country: None (occurrence: None)
  Receive Date: 20050506
  Receipt Date: 20050422
  Transmission Date: 20051028
  Serious: Yes (Hospitalization)
  Sender: FDA-Public Use
  Company Number: 2005-0008191

PATIENT
  Age: 28 Year
  Sex: Male

DRUGS (8)
  1. TENOFOVIR DISOPROXIL FUMARATE (TENOFOVIR DISOPROXIL FUMARATE) [Suspect]
     Indication: HIV INFECTION
     Dosage: 300 MG, 1 IN 1 D
  2. ZERIT XR [Suspect]
     Indication: HIV INFECTION
     Dosage: 100 MG, 1 IN 1 D
  3. EFAVIRENZ [Suspect]
     Indication: HIV INFECTION
     Dosage: 600 MG, 1 IN 1 D
  4. ALCAR (ACETYLCARNITINE) [Suspect]
  5. DIFLUCAN [Concomitant]
  6. VALTREX [Concomitant]
  7. ETIBI (ETHAMBUTOL DIHYDROCHLORIDE) [Concomitant]
  8. KLACID (CLARITHROMYCIN) [Concomitant]

REACTIONS (9)
  - ANAEMIA [None]
  - ASTHENIA [None]
  - C-REACTIVE PROTEIN INCREASED [None]
  - DIARRHOEA [None]
  - EXANTHEM [None]
  - LYMPHADENOPATHY [None]
  - NEUTROPENIA [None]
  - PERFORMANCE STATUS DECREASED [None]
  - PYREXIA [None]
